FAERS Safety Report 16315299 (Version 2)
Quarter: 2019Q2

REPORT INFORMATION
  Report Type: Spontaneous
  Country: PL (occurrence: PL)
  Receive Date: 20190515
  Receipt Date: 20190627
  Transmission Date: 20190711
  Serious: Yes (Hospitalization, Other)
  Sender: FDA-Public Use
  Company Number: PL-ASTRAZENECA-2019SE70458

PATIENT
  Age: 66 Year
  Sex: Female

DRUGS (9)
  1. NEBILET [Concomitant]
     Active Substance: NEBIVOLOL
  2. POLOCARD [Concomitant]
     Active Substance: ASPIRIN
  3. TERTENSIF SR [Concomitant]
     Active Substance: INDAPAMIDE
  4. LORATADINE. [Concomitant]
     Active Substance: LORATADINE
  5. IPP [Concomitant]
     Active Substance: PANTOPRAZOLE SODIUM
  6. BRILIQUE [Suspect]
     Active Substance: TICAGRELOR
     Dosage: 90.0MG UNKNOWN
     Route: 048
     Dates: start: 201802
  7. PRESTARIUM [Concomitant]
     Active Substance: PERINDOPRIL
  8. EBIVOL [Concomitant]
  9. GLUCOPHAGE [Concomitant]
     Active Substance: METFORMIN HYDROCHLORIDE

REACTIONS (4)
  - Myocardial infarction [Unknown]
  - Drug ineffective [Unknown]
  - Vascular stent stenosis [Unknown]
  - Product residue present [Unknown]

NARRATIVE: CASE EVENT DATE: 201810
